FAERS Safety Report 26185331 (Version 1)
Quarter: 2025Q4

REPORT INFORMATION
  Report Type: Spontaneous
  Country: AU (occurrence: AU)
  Receive Date: 20251222
  Receipt Date: 20251222
  Transmission Date: 20260117
  Serious: Yes (Other)
  Sender: SANOFI AVENTIS
  Company Number: AU-SA-2025SA375343

PATIENT
  Sex: Female

DRUGS (18)
  1. ALLOPURINOL [Suspect]
     Active Substance: ALLOPURINOL
     Indication: Product used for unknown indication
     Dosage: 100 MG, QD
  2. COLCHICINE [Suspect]
     Active Substance: COLCHICINE
     Indication: Product used for unknown indication
     Dosage: 0.5 UG, QD
  3. CHOLECALCIFEROL [Suspect]
     Active Substance: CHOLECALCIFEROL
     Indication: Product used for unknown indication
     Dosage: 1000 IU, QD
  4. FUROSEMIDE [Suspect]
     Active Substance: FUROSEMIDE
     Indication: Product used for unknown indication
     Dosage: 80 MG
  5. HYDROXYCHLOROQUINE SULFATE [Suspect]
     Active Substance: HYDROXYCHLOROQUINE SULFATE
     Indication: Product used for unknown indication
     Dosage: 400 MG
  6. IRBESARTAN [Suspect]
     Active Substance: IRBESARTAN
     Indication: Product used for unknown indication
     Dosage: 75 MG, QD
  7. LERCANIDIPINE HYDROCHLORIDE [Suspect]
     Active Substance: LERCANIDIPINE HYDROCHLORIDE
     Indication: Product used for unknown indication
     Dosage: 20 MG, QD
  8. MYCOPHENOLATE MOFETIL [Suspect]
     Active Substance: MYCOPHENOLATE MOFETIL
     Indication: Product used for unknown indication
     Dosage: 720 MG, QD
  9. PREDNISOLONE [Suspect]
     Active Substance: PREDNISOLONE
     Indication: Product used for unknown indication
     Dosage: 10 MG, QD
  10. PANTOPRAZOLE SODIUM [Suspect]
     Active Substance: PANTOPRAZOLE SODIUM
     Indication: Product used for unknown indication
     Dosage: 40 MG, QD
  11. PRAZOSIN HYDROCHLORIDE [Suspect]
     Active Substance: PRAZOSIN HYDROCHLORIDE
     Indication: Product used for unknown indication
     Dosage: 30 MG, QD
  12. ARANESP [Suspect]
     Active Substance: DARBEPOETIN ALFA
     Indication: Product used for unknown indication
     Dosage: 80 UG
  13. BACTRIM DS [Suspect]
     Active Substance: SULFAMETHOXAZOLE\TRIMETHOPRIM
     Indication: Product used for unknown indication
     Dosage: 1.5 DOSE UNSPECIFIED
  14. CALTRATE [Suspect]
     Active Substance: CALCIUM CARBONATE
     Indication: Product used for unknown indication
     Dosage: 3600 MG, QD
  15. CALCITRIOL [Suspect]
     Active Substance: CALCITRIOL
     Indication: Product used for unknown indication
     Dosage: 0.25 UG, QD
  16. HYDRALAZINE HYDROCHLORIDE [Suspect]
     Active Substance: HYDRALAZINE HYDROCHLORIDE
     Indication: Product used for unknown indication
     Dosage: 75 MG, QD
  17. METOPROLOL [Suspect]
     Active Substance: METOPROLOL
     Indication: Product used for unknown indication
     Dosage: 25 MG, QD
  18. MOXONIDINE [Suspect]
     Active Substance: MOXONIDINE
     Indication: Product used for unknown indication
     Dosage: 400 UG, QD

REACTIONS (5)
  - Heart failure with preserved ejection fraction [Unknown]
  - Renal impairment [Unknown]
  - Abdominal pain [Unknown]
  - Haematuria [Unknown]
  - Maternal exposure during pregnancy [Unknown]
